FAERS Safety Report 4859878-X (Version None)
Quarter: 2005Q4

REPORT INFORMATION
  Report Type: 
  Country: None (occurrence: None)
  Receive Date: 20051215
  Receipt Date: 20051205
  Transmission Date: 20060501
  Serious: Yes (Hospitalization)
  Sender: FDA-Public Use
  Company Number: 200510701BFR

PATIENT
  Age: 70 Year
  Sex: Male
  Weight: 71 kg

DRUGS (6)
  1. ACARBOSE [Suspect]
     Dosage: 300 MG, TOTAL DAILY, ORAL
     Route: 048
  2. INEXIUM (ESOMEPRAZOLE) [Suspect]
     Dosage: QD, ORAL
     Route: 048
  3. PRIMPERAN TAB [Suspect]
     Dosage: ORAL
     Route: 048
  4. GAVISCON [Suspect]
     Dosage: ORAL
     Route: 048
  5. RAMIPRIL [Suspect]
     Dosage: 2.5 MG, TOTAL DAILY, ORAL
     Route: 048
     Dates: start: 20050326, end: 20050915
  6. PROGRAF [Suspect]
     Dosage: 1.5 MG, TOTAL DAILY, ORAL
     Route: 048

REACTIONS (1)
  - ANAEMIA [None]
